FAERS Safety Report 17220729 (Version 1)
Quarter: 2019Q4

REPORT INFORMATION
  Report Type: Report from Study
  Country: US (occurrence: US)
  Receive Date: 20191231
  Receipt Date: 20191231
  Transmission Date: 20200122
  Serious: Yes (Hospitalization, Other)
  Sender: FDA-Public Use
  Company Number: US-GILEAD-2019-0444998

PATIENT
  Age: 30 Year
  Sex: Female

DRUGS (3)
  1. LINEZOLID. [Concomitant]
     Active Substance: LINEZOLID
  2. SYMDEKO [Concomitant]
     Active Substance: IVACAFTOR\TEZACAFTOR
  3. AZTREONAM LYSINE [Suspect]
     Active Substance: AZTREONAM LYSINE
     Indication: CYSTIC FIBROSIS
     Dosage: 1 VIAL 28 DAYS ON/OFF
     Route: 055
     Dates: start: 20191029

REACTIONS (2)
  - Pneumonia [Unknown]
  - Cystic fibrosis [Unknown]

NARRATIVE: CASE EVENT DATE: 201912
